FAERS Safety Report 17895423 (Version 2)
Quarter: 2020Q3

REPORT INFORMATION
  Report Type: Spontaneous
  Country: KR (occurrence: KR)
  Receive Date: 20200615
  Receipt Date: 20200701
  Transmission Date: 20201103
  Serious: Yes (Other)
  Sender: FDA-Public Use
  Company Number: KR-SUN PHARMACEUTICAL INDUSTRIES LTD-2020RR-250390

PATIENT
  Age: 81 Year
  Sex: Male

DRUGS (8)
  1. AD MYCIN [Suspect]
     Active Substance: DOXORUBICIN HYDROCHLORIDE
     Indication: LYMPHOMA
     Dosage: SIX CYCLES
     Route: 065
  2. ENDOXAN [Suspect]
     Active Substance: CYCLOPHOSPHAMIDE
     Indication: LYMPHOMA
     Dosage: SIX CYCLES
     Route: 065
  3. SOLONDO [Suspect]
     Active Substance: PREDNISOLONE
     Indication: LYMPHOMA
     Dosage: SIX CYCLES
     Route: 065
  4. SPRYCEL [Suspect]
     Active Substance: DASATINIB
     Indication: CHRONIC MYELOID LEUKAEMIA
     Dosage: UNK
     Route: 065
     Dates: start: 201008
  5. SUPECT [Suspect]
     Active Substance: RADOTINIB
     Indication: CHRONIC MYELOID LEUKAEMIA
     Dosage: 800 MILLIGRAM, DAILY
     Dates: start: 201211
  6. VINCRISTINE SULFATE INJ [Suspect]
     Active Substance: VINCRISTINE SULFATE
     Indication: LYMPHOMA
     Dosage: SIX CYCLES
     Route: 065
  7. GLIVEC [Suspect]
     Active Substance: IMATINIB MESYLATE
     Indication: CHRONIC MYELOID LEUKAEMIA
     Dosage: 400 MILLIGRAM, DAILY
     Route: 065
     Dates: start: 200302
  8. MABTHERA [Suspect]
     Active Substance: RITUXIMAB
     Indication: LYMPHOMA
     Dosage: SIX CYCLES
     Route: 065

REACTIONS (3)
  - Lymphoma [Unknown]
  - Drug ineffective [Unknown]
  - Therapeutic product effect incomplete [Unknown]
